FAERS Safety Report 9400259 (Version 3)
Quarter: 2013Q3

REPORT INFORMATION
  Report Type: Spontaneous
  Country: US (occurrence: None)
  Receive Date: 20130701
  Receipt Date: 20130816
  Transmission Date: 20140515
  Serious: Yes (Death, Hospitalization, Other)
  Sender: FDA-Public Use
  Company Number: ALK-2013-001729

PATIENT
  Age: 65 Year
  Sex: Female
  Weight: 64.9 kg

DRUGS (7)
  1. VIVITROL (VIVITROL_NDA) INJECTION, 380MG [Suspect]
     Indication: ALCOHOLISM
     Route: 030
     Dates: start: 20120531, end: 20130312
  2. SIMVASTATIN (SIMVASTATIN) [Concomitant]
  3. SEROQUEL XR (QUETIAPINE FUMARATE) [Concomitant]
  4. EFFEXOR XR (VENLAFAXINE HYDROCHLORIDE) (75 MILLIGRAM, CAPSULE) (VENLAFAXINE HYDROCHLORIDE) [Concomitant]
  5. NEXIUM (ESOMEPRAZOLE MAGNESIUM) [Concomitant]
  6. TEKTURNA (ALISKIREN FUMARATE) [Concomitant]
  7. OMEPRAZOLE [Concomitant]

REACTIONS (3)
  - Cardiac death [None]
  - Thoracic haemorrhage [None]
  - Myocardial infarction [None]
